FAERS Safety Report 7967415-6 (Version None)
Quarter: 2011Q4

REPORT INFORMATION
  Report Type: 
  Country: None (occurrence: None)
  Receive Date: 20111209
  Receipt Date: 20111124
  Transmission Date: 20120403
  Serious: Yes (Other)
  Sender: FDA-Public Use
  Company Number: FR-CELGENEUS-056-C5013-11100138

PATIENT
  Sex: Male

DRUGS (6)
  1. LENALIDOMIDE [Suspect]
     Indication: MYELODYSPLASTIC SYNDROME
     Dosage: 10 MILLIGRAM
     Route: 048
     Dates: start: 20110307, end: 20110822
  2. ACETAMINOPHEN [Concomitant]
     Indication: PROPHYLAXIS
     Route: 048
     Dates: start: 20110324
  3. CIALIS [Concomitant]
     Route: 048
     Dates: start: 20110518
  4. EXJADE [Concomitant]
     Indication: IRON OVERLOAD
     Dosage: 1000 MILLIGRAM
     Route: 048
     Dates: start: 20110417
  5. ASPEGIC 325 [Concomitant]
     Indication: PROPHYLAXIS
     Dosage: 100 MILLIGRAM
     Route: 065
     Dates: start: 20110531
  6. CORTISONE ACETATE [Concomitant]
     Indication: SKIN LESION
     Route: 061
     Dates: start: 20110725

REACTIONS (1)
  - PROSTATE CANCER [None]
